FAERS Safety Report 15355488 (Version 1)
Quarter: 2018Q4

REPORT INFORMATION
  Report Type: Spontaneous
  Country: US (occurrence: US)
  Receive Date: 20180906
  Receipt Date: 20180906
  Transmission Date: 20190204
  Serious: Yes (Life-Threatening, Hospitalization)
  Sender: FDA-Public Use
  Company Number: US-VIVIMED-2018SP007261

PATIENT

DRUGS (2)
  1. DIPHENHYDRAMINE                    /00000402/ [Suspect]
     Active Substance: DIPHENHYDRAMINE
     Indication: INSOMNIA
     Dosage: 50 MG, UNK
     Route: 065
  2. ZOLPIDEM [Suspect]
     Active Substance: ZOLPIDEM\ZOLPIDEM TARTRATE
     Indication: INSOMNIA
     Dosage: 5 MG, UNK
     Route: 065

REACTIONS (9)
  - Crush syndrome [Recovered/Resolved]
  - Pain [Recovered/Resolved]
  - Compartment syndrome [Recovered/Resolved]
  - Induration [Recovered/Resolved]
  - Swelling [Recovered/Resolved]
  - Oedema [Recovered/Resolved]
  - Fluid overload [Recovered/Resolved]
  - Hyperkalaemia [Recovered/Resolved]
  - Hypokinesia [Recovered/Resolved]
